FAERS Safety Report 10831752 (Version 2)
Quarter: 2015Q3

REPORT INFORMATION
  Report Type: Report from Study
  Country: US (occurrence: US)
  Receive Date: 20150219
  Receipt Date: 20150820
  Transmission Date: 20151125
  Serious: Yes (Hospitalization, Other)
  Sender: FDA-Public Use
  Company Number: US-ABBVIE-14P-163-1192928-00

PATIENT
  Age: 59 Year
  Sex: Female
  Weight: 81.72 kg

DRUGS (10)
  1. FOLIC ACID. [Concomitant]
     Active Substance: FOLIC ACID
     Indication: VITAMIN SUPPLEMENTATION
  2. OMEGA 3 [Concomitant]
     Active Substance: OMEGA-3 FATTY ACIDS
     Indication: SUPPLEMENTATION THERAPY
  3. VITAMIN C COMPLEX [Concomitant]
     Indication: VITAMIN SUPPLEMENTATION
  4. BIOTIN [Concomitant]
     Active Substance: BIOTIN
     Indication: VITAMIN SUPPLEMENTATION
  5. HUMIRA [Suspect]
     Active Substance: ADALIMUMAB
     Indication: RHEUMATOID ARTHRITIS
     Route: 058
     Dates: start: 20130930, end: 20150505
  6. PROBIOTICS NOS [Concomitant]
     Active Substance: PROBIOTICS NOS
     Indication: PROBIOTIC THERAPY
  7. SIMPONI [Suspect]
     Active Substance: GOLIMUMAB
     Indication: RHEUMATOID ARTHRITIS
     Route: 065
     Dates: start: 20150610
  8. METHOTREXATE [Concomitant]
     Active Substance: METHOTREXATE
     Indication: RHEUMATOID ARTHRITIS
  9. COQ 10 [Concomitant]
     Active Substance: UBIDECARENONE
     Indication: SUPPLEMENTATION THERAPY
  10. ENBREL [Suspect]
     Active Substance: ETANERCEPT
     Indication: RHEUMATOID ARTHRITIS
     Route: 065
     Dates: start: 20150512, end: 20150519

REACTIONS (15)
  - Muscle strain [Recovering/Resolving]
  - Abasia [Recovered/Resolved]
  - Pain in extremity [Recovering/Resolving]
  - Carpal tunnel syndrome [Recovered/Resolved]
  - Cough [Recovered/Resolved]
  - Pain in extremity [Recovered/Resolved]
  - Urticaria [Recovered/Resolved]
  - Rheumatoid arthritis [Recovered/Resolved]
  - Gait disturbance [Recovering/Resolving]
  - Rheumatoid arthritis [Recovered/Resolved]
  - Back pain [Recovering/Resolving]
  - Drug ineffective [Not Recovered/Not Resolved]
  - Rash generalised [Recovered/Resolved]
  - Sinus disorder [Not Recovered/Not Resolved]
  - Wheezing [Recovered/Resolved]

NARRATIVE: CASE EVENT DATE: 201309
